FAERS Safety Report 8122253-9 (Version None)
Quarter: 2011Q4

REPORT INFORMATION
  Report Type: 
  Country: None (occurrence: None)
  Receive Date: 20111227
  Receipt Date: 20110914
  Transmission Date: 20120403
  Serious: No
  Sender: FDA-Public Use
  Company Number: PHHY2011US52997

PATIENT
  Age: 41 Year
  Sex: Female

DRUGS (2)
  1. GILENYA [Suspect]
     Indication: MULTIPLE SCLEROSIS
     Dosage: 0.5 MG, QD, ORAL
     Route: 048
     Dates: start: 20110603
  2. PREDNISONE TAB [Concomitant]

REACTIONS (10)
  - FLUSHING [None]
  - EAR DISCOMFORT [None]
  - EAR PAIN [None]
  - PYREXIA [None]
  - BLOOD PRESSURE INCREASED [None]
  - IRRITABILITY [None]
  - VISION BLURRED [None]
  - VOMITING [None]
  - NAUSEA [None]
  - AGITATION [None]
